FAERS Safety Report 16729083 (Version 2)
Quarter: 2019Q4

REPORT INFORMATION
  Report Type: Spontaneous
  Country: US (occurrence: US)
  Receive Date: 20190822
  Receipt Date: 20191125
  Transmission Date: 20200122
  Serious: Yes (Other)
  Sender: FDA-Public Use
  Company Number: US-PFIZER INC-2019360936

PATIENT
  Age: 76 Year
  Sex: Female

DRUGS (1)
  1. LYRICA [Suspect]
     Active Substance: PREGABALIN
     Dosage: UNK

REACTIONS (9)
  - Dysgraphia [Unknown]
  - Neoplasm [Unknown]
  - Hypersensitivity [Unknown]
  - Bronchial disorder [Unknown]
  - Cataract [Unknown]
  - Asthma [Unknown]
  - Cough [Unknown]
  - Tremor [Unknown]
  - Malaise [Unknown]
